FAERS Safety Report 23457349 (Version 1)
Quarter: 2024Q1

REPORT INFORMATION
  Report Type: Spontaneous
  Country: CN (occurrence: CN)
  Receive Date: 20240130
  Receipt Date: 20240130
  Transmission Date: 20240410
  Serious: Yes (Hospitalization, Other)
  Sender: FDA-Public Use
  Company Number: None

PATIENT
  Age: 46 Year
  Sex: Female
  Weight: 58 kg

DRUGS (6)
  1. CYCLOPHOSPHAMIDE [Suspect]
     Active Substance: CYCLOPHOSPHAMIDE
     Indication: Breast cancer female
     Dosage: 800 MG ONE TIME IN ONE DAY DILUTED WITH 0.9% SODIUM CHLORIDE INJECTION 100ML
     Route: 041
     Dates: start: 20240105, end: 20240105
  2. CYCLOPHOSPHAMIDE [Suspect]
     Active Substance: CYCLOPHOSPHAMIDE
     Indication: Chemotherapy
  3. DEXTROSE [Suspect]
     Active Substance: DEXTROSE\DEXTROSE MONOHYDRATE
     Indication: Medication dilution
     Dosage: 100ML (5%), ONE TIME IN ONE DAY USED TO DILUTE PIRARUBICIN HYDROCHLORIDE FOR INJECTION 65 MG
     Route: 041
     Dates: start: 20240105, end: 20240105
  4. SODIUM CHLORIDE [Suspect]
     Active Substance: SODIUM CHLORIDE
     Indication: Medication dilution
     Dosage: 100ML (0.9%), ONE TIME IN ONE DAY USED TO DILUTE CYCLOPHOSPHAMIDE FOR INJECTION 800 MG
     Route: 041
     Dates: start: 20240105, end: 20240105
  5. PIRARUBICIN HYDROCHLORIDE [Suspect]
     Active Substance: PIRARUBICIN HYDROCHLORIDE
     Indication: Breast cancer female
     Dosage: 65MG ONE TIME IN ONE DAY DILUTED WITH 5% GLUCOSE INJECTION 100ML
     Route: 041
     Dates: start: 20240105, end: 20240105
  6. PIRARUBICIN HYDROCHLORIDE [Suspect]
     Active Substance: PIRARUBICIN HYDROCHLORIDE
     Indication: Chemotherapy

REACTIONS (1)
  - Myelosuppression [Recovered/Resolved]

NARRATIVE: CASE EVENT DATE: 20240113
